FAERS Safety Report 9028881 (Version 2)
Quarter: 2013Q1

REPORT INFORMATION
  Report Type: Report from Study
  Country: DE (occurrence: DE)
  Receive Date: 20130124
  Receipt Date: 20130129
  Transmission Date: 20140127
  Serious: Yes (Congenital Anomaly, Other)
  Sender: FDA-Public Use
  Company Number: DE-UCBSA-076484

PATIENT
  Age: 0 None
  Sex: 0

DRUGS (5)
  1. LEVETIRACETAM [Suspect]
     Indication: EPILEPSY
     Route: 064
     Dates: start: 20050611, end: 20060131
  2. CLOBAZAM [Suspect]
     Indication: EPILEPSY
     Route: 064
     Dates: start: 20050611, end: 20060131
  3. VALPROIC ACID [Suspect]
     Indication: EPILEPSY
     Route: 064
     Dates: start: 20050611, end: 2005
  4. VALPROIC ACID [Suspect]
     Indication: EPILEPSY
     Dosage: DAILY DOSE: 1500 MG, MAXIMUM SINGLE DOSE: 1000 MG
     Route: 064
     Dates: start: 2005, end: 20060131
  5. LAMOTRIGINE [Concomitant]
     Indication: EPILEPSY
     Dosage: MAXIMAUM SINGLE DOSE: 200 MG.TOTAL DAILY DOSE : 350 MG
     Route: 064
     Dates: start: 20050611, end: 20050622

REACTIONS (9)
  - Atrial septal defect [Not Recovered/Not Resolved]
  - Ventricular septal defect [Not Recovered/Not Resolved]
  - Small for dates baby [Unknown]
  - Supraventricular tachycardia [Unknown]
  - Foetal growth restriction [Unknown]
  - Motor developmental delay [Unknown]
  - Failure to thrive [Unknown]
  - Premature baby [Unknown]
  - Foetal exposure during pregnancy [Recovered/Resolved]
